FAERS Safety Report 6032608-4 (Version None)
Quarter: 2009Q1

REPORT INFORMATION
  Report Type: 
  Country: None (occurrence: None)
  Receive Date: 20090109
  Receipt Date: 20090105
  Transmission Date: 20090719
  Serious: Yes (Life-Threatening, Hospitalization)
  Sender: FDA-Public Use
  Company Number: PHHY2009GB00526

PATIENT
  Age: 81 Year
  Sex: Male

DRUGS (6)
  1. OXPRENOLOL [Suspect]
     Indication: ATRIAL FIBRILLATION
     Dosage: 100 MG, QD
     Route: 048
     Dates: start: 20070118, end: 20070716
  2. ASPIRIN [Concomitant]
     Indication: CARDIOVASCULAR EVENT PROPHYLAXIS
     Dosage: 75 MG
     Route: 048
     Dates: start: 19900101
  3. FINASTERIDE [Concomitant]
     Indication: BENIGN PROSTATIC HYPERPLASIA
     Dosage: 5 MG
     Route: 048
     Dates: start: 19920101
  4. LEVOTHYROXINE SODIUM [Concomitant]
     Indication: HYPOTHYROIDISM
     Dosage: 50 UG, QD
     Dates: start: 19900101
  5. IKOREL [Concomitant]
     Indication: ANGINA PECTORIS
     Dosage: 10 MG
     Route: 048
     Dates: start: 20070118
  6. SIMVASTATIN [Concomitant]
     Indication: ANGINA PECTORIS
     Dosage: 40 MG
     Dates: start: 20070118

REACTIONS (3)
  - ASTHMA [None]
  - BRONCHOSPASM [None]
  - DYSPNOEA [None]
